FAERS Safety Report 11779513 (Version 1)
Quarter: 2015Q4

REPORT INFORMATION
  Report Type: Report from Study
  Country: NL (occurrence: NL)
  Receive Date: 20151125
  Receipt Date: 20151125
  Transmission Date: 20160304
  Serious: Yes (Life-Threatening)
  Sender: FDA-Public Use
  Company Number: NL-ABBVIE-15P-114-1508061-00

PATIENT
  Age: 61 Year
  Sex: Female

DRUGS (1)
  1. DUODOPA [Suspect]
     Active Substance: CARBIDOPA\LEVODOPA
     Indication: PARKINSON^S DISEASE
     Dosage: 20/5MG/ML,MD:7.0 CD: 6.7 ED: 5.4 ND: NONE
     Route: 050
     Dates: start: 20140130

REACTIONS (3)
  - Mobility decreased [Not Recovered/Not Resolved]
  - Resuscitation [Recovered/Resolved]
  - Stoma site extravasation [Not Recovered/Not Resolved]

NARRATIVE: CASE EVENT DATE: 201508
